FAERS Safety Report 11686977 (Version 1)
Quarter: 2015Q4

REPORT INFORMATION
  Report Type: Spontaneous
  Country: US (occurrence: US)
  Receive Date: 20151030
  Receipt Date: 20151030
  Transmission Date: 20160314
  Serious: No
  Sender: FDA-Public Use
  Company Number: US-BAUSCH-BL-2014-007030

PATIENT
  Sex: Female

DRUGS (2)
  1. PREDNISOLONE. [Concomitant]
     Active Substance: PREDNISOLONE
     Indication: PRODUCT USED FOR UNKNOWN INDICATION
  2. BEPREVE [Suspect]
     Active Substance: BEPOTASTINE BESILATE
     Indication: EYE INFLAMMATION
     Route: 047
     Dates: start: 2014

REACTIONS (2)
  - Expired product administered [Not Recovered/Not Resolved]
  - Drug ineffective [Not Recovered/Not Resolved]

NARRATIVE: CASE EVENT DATE: 2014
